FAERS Safety Report 5161380-5 (Version None)
Quarter: 2006Q4

REPORT INFORMATION
  Report Type: 
  Country: None (occurrence: None)
  Receive Date: 20061130
  Receipt Date: 20061117
  Transmission Date: 20070319
  Serious: Yes (Death, Hospitalization)
  Sender: FDA-Public Use
  Company Number: US-ROCHE-471846

PATIENT
  Age: 75 Year
  Sex: Male
  Weight: 102.1 kg

DRUGS (3)
  1. CELLCEPT [Suspect]
     Route: 048
     Dates: start: 19970715, end: 20061119
  2. NEORAL [Concomitant]
     Route: 048
     Dates: start: 19970715, end: 20061119
  3. PREDNISONE TAB [Concomitant]
     Route: 048
     Dates: start: 19970715, end: 20061119

REACTIONS (5)
  - CARDIAC ARREST [None]
  - CONFUSIONAL STATE [None]
  - FALL [None]
  - PARKINSON'S DISEASE [None]
  - VERTIGO [None]
